FAERS Safety Report 6495154-X (Version None)
Quarter: 2009Q4

REPORT INFORMATION
  Report Type: 
  Country: None (occurrence: None)
  Receive Date: 20091209
  Receipt Date: 20091124
  Transmission Date: 20100525
  Serious: Yes (Hospitalization)
  Sender: FDA-Public Use
  Company Number: 1000009967

PATIENT
  Age: 61 Year
  Sex: Female
  Weight: 68 kg

DRUGS (10)
  1. MEMANTINE HCL [Suspect]
     Indication: DEMENTIA ALZHEIMER'S TYPE
     Dosage: 20 MG, ORAL;5 MG, ORA; 10 MG, ORAL; 15 MG,ORAL
     Route: 048
     Dates: start: 20090703, end: 20090709
  2. MEMANTINE HCL [Suspect]
     Indication: DEMENTIA ALZHEIMER'S TYPE
     Dosage: 20 MG, ORAL;5 MG, ORA; 10 MG, ORAL; 15 MG,ORAL
     Route: 048
     Dates: start: 20090717, end: 20090723
  3. MEMANTINE HCL [Suspect]
     Indication: DEMENTIA ALZHEIMER'S TYPE
     Dosage: 20 MG, ORAL;5 MG, ORA; 10 MG, ORAL; 15 MG,ORAL
     Route: 048
     Dates: start: 20090724, end: 20090923
  4. BISOPROLOL [Concomitant]
  5. CITALOPRAM HYDROBROMIDE [Concomitant]
  6. ARICEPT [Concomitant]
  7. PANTOPRAZOL [Concomitant]
  8. ACICLOVIR [Concomitant]
  9. VOLTAREN [Concomitant]
  10. ANAESTHESULF [Concomitant]

REACTIONS (5)
  - DRUG INEFFECTIVE [None]
  - HYPERTENSIVE CRISIS [None]
  - NAUSEA [None]
  - SINUS BRADYCARDIA [None]
  - VOMITING [None]
